APPROVED DRUG PRODUCT: TRANSDERM-NITRO
Active Ingredient: NITROGLYCERIN
Strength: 0.8MG/HR **Federal Register determination that product was not discontinued or withdrawn for safety or effectiveness reasons**
Dosage Form/Route: FILM, EXTENDED RELEASE;TRANSDERMAL
Application: N020144 | Product #005
Applicant: NOVARTIS PHARMACEUTICALS CORP
Approved: Feb 27, 1996 | RLD: Yes | RS: No | Type: DISCN